FAERS Safety Report 7913872-0 (Version None)
Quarter: 2011Q4

REPORT INFORMATION
  Report Type: 
  Country: None (occurrence: None)
  Receive Date: 20111115
  Receipt Date: 20111108
  Transmission Date: 20120403
  Serious: Yes (Other)
  Sender: FDA-Public Use
  Company Number: US-PFIZER INC-2011274767

PATIENT
  Sex: Female
  Weight: 58.957 kg

DRUGS (11)
  1. VALIUM [Concomitant]
     Indication: MUSCLE SPASMS
     Dosage: 5 MG, 3X/DAY
     Route: 048
  2. PERCOCET [Concomitant]
     Indication: NEURALGIA
     Dosage: 10/325 MG, 8X/DAY
     Route: 048
  3. GABAPENTIN [Concomitant]
     Indication: SCIATICA
  4. GABAPENTIN [Concomitant]
     Indication: NEURALGIA
     Dosage: 300 MG, 2X/DAY
  5. DILAUDID [Concomitant]
     Indication: SCIATICA
     Dosage: 2 MG, 3X/DAY
     Route: 048
  6. IBUPROFEN [Concomitant]
     Indication: SCIATICA
     Dosage: 800 MG, 3X/DAY
     Dates: end: 20110101
  7. IBUPROFEN [Concomitant]
     Indication: NEURALGIA
  8. CHANTIX [Suspect]
     Dosage: UNK
     Route: 048
     Dates: start: 20110101
  9. DILAUDID [Concomitant]
     Indication: NEURALGIA
  10. PERCOCET [Concomitant]
     Indication: SCIATICA
  11. CHANTIX [Suspect]
     Indication: SMOKING CESSATION THERAPY
     Dosage: 0.5 MG, DAILY
     Route: 048
     Dates: start: 20111001, end: 20110101

REACTIONS (7)
  - GASTRIC DISORDER [None]
  - FEELING ABNORMAL [None]
  - SURGERY [None]
  - BLOOD PRESSURE DECREASED [None]
  - SPINAL FUSION SURGERY [None]
  - NAUSEA [None]
  - ANGER [None]
